FAERS Safety Report 7383692-7 (Version None)
Quarter: 2011Q1

REPORT INFORMATION
  Report Type: 
  Country: None (occurrence: None)
  Receive Date: 20110330
  Receipt Date: 20110321
  Transmission Date: 20110831
  Serious: Yes (Other)
  Sender: FDA-Public Use
  Company Number: DE-ROCHE-756894

PATIENT
  Sex: Female
  Weight: 54 kg

DRUGS (1)
  1. HERCEPTIN [Suspect]
     Route: 042
     Dates: start: 20030901

REACTIONS (2)
  - RESTLESS LEGS SYNDROME [None]
  - DEMYELINATING POLYNEUROPATHY [None]
